FAERS Safety Report 10900365 (Version 1)
Quarter: 2015Q1

REPORT INFORMATION
  Report Type: Spontaneous
  Country: US (occurrence: None)
  Receive Date: 20150303
  Receipt Date: 20150303
  Transmission Date: 20150721
  Serious: Yes (Death, Life-Threatening, Hospitalization, Disabling)
  Sender: FDA-Public Use
  Company Number: None

PATIENT
  Age: 60 Year
  Sex: Male
  Weight: 99.79 kg

DRUGS (13)
  1. ASPIRIN. [Concomitant]
     Active Substance: ASPIRIN
  2. VITAMIN D [Concomitant]
     Active Substance: CHOLECALCIFEROL
  3. ALLOPURINOL. [Concomitant]
     Active Substance: ALLOPURINOL
  4. ADDERALL [Concomitant]
     Active Substance: AMPHETAMINE ASPARTATE\AMPHETAMINE SULFATE\DEXTROAMPHETAMINE SACCHARATE\DEXTROAMPHETAMINE SULFATE
  5. SIMVASTATIN. [Concomitant]
     Active Substance: SIMVASTATIN
  6. LISINOPRIL. [Concomitant]
     Active Substance: LISINOPRIL
  7. CPAP MACHINE [Concomitant]
  8. FLUOXETINE [Concomitant]
     Active Substance: FLUOXETINE\FLUOXETINE HYDROCHLORIDE
  9. CERTRIZINE HCL [Concomitant]
  10. KLONOPIN [Concomitant]
     Active Substance: CLONAZEPAM
  11. AMPHETAMINE MIXED SALTS [Suspect]
     Active Substance: AMPHETAMINE ASPARTATE\AMPHETAMINE SULFATE\DEXTROAMPHETAMINE SACCHARATE\DEXTROAMPHETAMINE SULFATE
     Indication: SOMNOLENCE
     Dosage: 10 MG 1 TABLET ONCE IN THE AM ORALLY
     Route: 048
     Dates: start: 20140923, end: 20141102
  12. AMLODIPINE [Concomitant]
     Active Substance: AMLODIPINE BESYLATE
  13. TEMAZEPAM. [Concomitant]
     Active Substance: TEMAZEPAM

REACTIONS (11)
  - Haemoptysis [None]
  - Electrocardiogram abnormal [None]
  - Pulmonary oedema [None]
  - Cardio-respiratory arrest [None]
  - Cardiomegaly [None]
  - Myocardial necrosis marker increased [None]
  - Chest X-ray abnormal [None]
  - Multi-organ failure [None]
  - Ejection fraction decreased [None]
  - Dyspnoea [None]
  - Computerised tomogram abnormal [None]

NARRATIVE: CASE EVENT DATE: 20141104
